FAERS Safety Report 4300545-9 (Version None)
Quarter: 2004Q1

REPORT INFORMATION
  Report Type: 
  Country: None (occurrence: None)
  Receive Date: 20040220
  Receipt Date: 20040212
  Transmission Date: 20041129
  Serious: Yes (Other)
  Sender: FDA-Public Use
  Company Number: PHBS2004DO02153

PATIENT
  Age: 10 Year
  Sex: Female

DRUGS (1)
  1. ZADITEN [Suspect]
     Indication: RHINITIS ALLERGIC
     Dosage: 2 MG, DAILY
     Dates: start: 20031024, end: 20040114

REACTIONS (5)
  - DYSURIA [None]
  - ERYTHEMA [None]
  - HYPERAESTHESIA [None]
  - PAIN IN EXTREMITY [None]
  - PARAESTHESIA [None]
